FAERS Safety Report 8991840 (Version 3)
Quarter: 2013Q2

REPORT INFORMATION
  Report Type: Spontaneous
  Country: JP (occurrence: JP)
  Receive Date: 20121231
  Receipt Date: 20130415
  Transmission Date: 20140414
  Serious: Yes (Hospitalization, Disabling, Other)
  Sender: FDA-Public Use
  Company Number: PHHY2012JP117690

PATIENT
  Sex: Female

DRUGS (5)
  1. SANDIMMUN [Suspect]
     Indication: HISTIOCYTOSIS HAEMATOPHAGIC
     Dosage: 3 MG/KG, QD
     Route: 042
     Dates: start: 20120324
  2. SANDIMMUN [Suspect]
     Dosage: 150 MG, UNK
     Dates: start: 201203
  3. ETOPOSIDE [Suspect]
     Indication: HISTIOCYTOSIS HAEMATOPHAGIC
     Dosage: 150 MG/M2, QW2
     Dates: start: 20120327, end: 20120403
  4. PREDNISOLONE [Suspect]
     Indication: HISTIOCYTOSIS HAEMATOPHAGIC
     Dosage: 2 MG/KG, PER DAY
     Route: 048
     Dates: start: 20120316
  5. ACIROVEC [Suspect]
     Dosage: 30 MG/KG, UNK
     Route: 042
     Dates: start: 20120330

REACTIONS (10)
  - Bone marrow failure [Unknown]
  - Herpes virus infection [Unknown]
  - Ophthalmic herpes simplex [Recovering/Resolving]
  - Oral disorder [Recovering/Resolving]
  - Blister [Recovering/Resolving]
  - Posterior reversible encephalopathy syndrome [Recovering/Resolving]
  - Convulsion [Recovering/Resolving]
  - Serum ferritin increased [Unknown]
  - Pyrexia [Recovered/Resolved]
  - Liver disorder [Unknown]
